FAERS Safety Report 9663755 (Version 1)
Quarter: 2013Q4

REPORT INFORMATION
  Report Type: Spontaneous
  Country: JP (occurrence: JP)
  Receive Date: 20131101
  Receipt Date: 20131101
  Transmission Date: 20140711
  Serious: Yes (Other)
  Sender: FDA-Public Use
  Company Number: JP-SA-2013SA109103

PATIENT
  Sex: 0

DRUGS (1)
  1. BCG FOR IMMUNOTHERAPY [Suspect]
     Indication: IMMUNISATION
     Route: 065

REACTIONS (1)
  - Cystitis [Unknown]
